FAERS Safety Report 4337897-X (Version None)
Quarter: 2004Q1

REPORT INFORMATION
  Report Type: 
  Country: None (occurrence: None)
  Receive Date: 20040329
  Receipt Date: 20040129
  Transmission Date: 20041129
  Serious: No
  Sender: FDA-Public Use
  Company Number: USA040158040

PATIENT
  Age: 31 Year
  Sex: Female
  Weight: 59 kg

DRUGS (3)
  1. STRATTERA [Suspect]
     Indication: ATTENTION DEFICIT/HYPERACTIVITY DISORDER
     Dosage: 18 MG/DAY
     Dates: start: 20040126
  2. ATIVAN [Concomitant]
  3. TIAGABINE [Concomitant]

REACTIONS (4)
  - DRUG INEFFECTIVE [None]
  - RENAL PAIN [None]
  - URINE ABNORMALITY [None]
  - URTICARIA [None]
